FAERS Safety Report 12372735 (Version 2)
Quarter: 2018Q3

REPORT INFORMATION
  Report Type: Report from Study
  Country: JP (occurrence: JP)
  Receive Date: 20160516
  Receipt Date: 20180813
  Transmission Date: 20181010
  Serious: Yes (Death, Hospitalization, Other)
  Sender: FDA-Public Use
  Company Number: JP-SA-2016SA093356

PATIENT
  Age: 18 Year
  Sex: Male

DRUGS (5)
  1. CYLOCIDE [Concomitant]
     Active Substance: CYTARABINE
     Indication: LYMPHOCYTIC LEUKAEMIA
     Dosage: 28 MG/BODY, QD
     Route: 041
     Dates: start: 20160102, end: 20160106
  2. CLOFARABINE. [Suspect]
     Active Substance: CLOFARABINE
     Indication: ACUTE LYMPHOCYTIC LEUKAEMIA
     Dosage: 72 MG/BODY, QD
     Route: 042
     Dates: start: 20151208, end: 20151212
  3. CLOFARABINE. [Suspect]
     Active Substance: CLOFARABINE
     Indication: ACUTE LYMPHOCYTIC LEUKAEMIA REFRACTORY
  4. LEUKERIN [Concomitant]
     Active Substance: MERCAPTOPURINE
     Indication: ACUTE LYMPHOCYTIC LEUKAEMIA
     Dosage: 50 MG/M2, QD
     Route: 048
     Dates: start: 20151228, end: 20151231
  5. ETOPOSIDE. [Concomitant]
     Active Substance: ETOPOSIDE
     Indication: ACUTE LYMPHOCYTIC LEUKAEMIA
     Dosage: 41 MG/BODY, QD
     Route: 041
     Dates: start: 20160102, end: 20160106

REACTIONS (8)
  - Death [Fatal]
  - Hepatic function abnormal [Recovered/Resolved]
  - White blood cell count decreased [Unknown]
  - Neutropenia [Recovered/Resolved]
  - Hepatic function abnormal [Not Recovered/Not Resolved]
  - Nausea [Recovered/Resolved]
  - Febrile neutropenia [Recovering/Resolving]
  - Anaemia [Recovering/Resolving]

NARRATIVE: CASE EVENT DATE: 20151208
